FAERS Safety Report 25922557 (Version 2)
Quarter: 2025Q4

REPORT INFORMATION
  Report Type: Spontaneous
  Country: JP (occurrence: JP)
  Receive Date: 20251015
  Receipt Date: 20251107
  Transmission Date: 20260118
  Serious: Yes (Other)
  Sender: AMGEN
  Company Number: JP-AMGEN-JPNSP2025200151

PATIENT

DRUGS (2)
  1. BLINCYTO [Suspect]
     Active Substance: BLINATUMOMAB
     Indication: B precursor type acute leukaemia
     Dosage: 9 MICROGRAM, CONTINUING, 24-H DRIP INTRAVENOUS INFUSION (DIV), CENTRAL VENOUS
     Route: 040
  2. BLINCYTO [Suspect]
     Active Substance: BLINATUMOMAB
     Dosage: 28 MICROGRAM, CONTINUING, 24-H DRIP INTRAVENOUS INFUSION (DIV), CENTRAL VENOUS
     Route: 040

REACTIONS (1)
  - Venoocclusive disease [Recovered/Resolved]
